FAERS Safety Report 19522451 (Version 1)
Quarter: 2021Q3

REPORT INFORMATION
  Report Type: Spontaneous
  Country: US (occurrence: US)
  Receive Date: 20210712
  Receipt Date: 20210712
  Transmission Date: 20211014
  Serious: No
  Sender: FDA-Public Use
  Company Number: US-MYOVANT SCIENCES GMBH-2021MYSCI0500173

PATIENT
  Age: 73 Year

DRUGS (2)
  1. ORGOVYX [Suspect]
     Active Substance: RELUGOLIX
     Indication: PROSTATE CANCER RECURRENT
     Dosage: 3 TAB, ONE TIME DOSE
     Route: 065
     Dates: start: 20210324, end: 20210324
  2. ORGOVYX [Suspect]
     Active Substance: RELUGOLIX
     Dosage: 1 TAB, QD
     Route: 065
     Dates: start: 20210325

REACTIONS (2)
  - Dry mouth [Unknown]
  - Dyspnoea [Unknown]

NARRATIVE: CASE EVENT DATE: 20210324
